FAERS Safety Report 8213944-X (Version None)
Quarter: 2012Q1

REPORT INFORMATION
  Report Type: 
  Country: None (occurrence: None)
  Receive Date: 20120316
  Receipt Date: 20120307
  Transmission Date: 20120608
  Serious: Yes (Hospitalization)
  Sender: FDA-Public Use
  Company Number: US-ELI_LILLY_AND_COMPANY-US201203002325

PATIENT
  Sex: Female

DRUGS (3)
  1. EFFIENT [Suspect]
     Dosage: 5 MG, UNKNOWN
     Route: 065
  2. EFFIENT [Suspect]
     Indication: PERCUTANEOUS CORONARY INTERVENTION
     Dosage: 5 MG, UNKNOWN
     Route: 065
     Dates: start: 20110901
  3. EFFIENT [Suspect]
     Dosage: 10 MG, UNKNOWN
     Route: 065

REACTIONS (1)
  - STENT PLACEMENT [None]
